FAERS Safety Report 5145257-7 (Version None)
Quarter: 2006Q4

REPORT INFORMATION
  Report Type: 
  Country: None (occurrence: None)
  Receive Date: 20060912
  Receipt Date: 20060502
  Transmission Date: 20070319
  Serious: Yes (Hospitalization)
  Sender: FDA-Public Use
  Company Number: 2006-BP-03094BP

PATIENT
  Age: 15 Year
  Sex: Female
  Weight: 88.7 kg

DRUGS (3)
  1. VIRAMUNE [Suspect]
     Indication: PROPHYLAXIS
     Dosage: (200 MG),PO
     Route: 048
  2. COMBIVIR [Suspect]
     Indication: PROPHYLAXIS
  3. BIRTH CONTROL [Concomitant]

REACTIONS (1)
  - STEVENS-JOHNSON SYNDROME [None]
